FAERS Safety Report 6821826-0 (Version None)
Quarter: 2010Q3

REPORT INFORMATION
  Report Type: 
  Country: None (occurrence: None)
  Receive Date: 20100708
  Receipt Date: 20100629
  Transmission Date: 20110219
  Serious: Yes (Hospitalization)
  Sender: FDA-Public Use
  Company Number: US-BIOGENIDEC-2009BI028790

PATIENT
  Age: 61 Year
  Sex: Female

DRUGS (1)
  1. AVONEX [Suspect]
     Indication: MULTIPLE SCLEROSIS
     Route: 030
     Dates: start: 20010301

REACTIONS (5)
  - HEPATECTOMY [None]
  - PNEUMONIA [None]
  - POST PROCEDURAL COMPLICATION [None]
  - RECTAL CANCER STAGE IV [None]
  - URINARY TRACT INFECTION [None]
